FAERS Safety Report 15289495 (Version 1)
Quarter: 2018Q3

REPORT INFORMATION
  Report Type: Spontaneous
  Country: US (occurrence: US)
  Receive Date: 20180803
  Receipt Date: 20180803
  Transmission Date: 20181010
  Serious: Yes (Life-Threatening, Disabling)
  Sender: FDA-Public Use
  Company Number: None

PATIENT
  Age: 76 Month
  Sex: Female
  Weight: 60.75 kg

DRUGS (10)
  1. CALCIUM/VITAMIN D3 [Concomitant]
  2. TELMISARTAN/HCTZ [Concomitant]
     Active Substance: HYDROCHLOROTHIAZIDE\TELMISARTAN
  3. LEVOTHYROXINE. [Concomitant]
     Active Substance: LEVOTHYROXINE
  4. CRESTOR [Concomitant]
     Active Substance: ROSUVASTATIN CALCIUM
  5. MELOXICAM. [Concomitant]
     Active Substance: MELOXICAM
  6. BISOPROLOL/HCTZ [Concomitant]
     Active Substance: BISOPROLOL FUMARATE\HYDROCHLOROTHIAZIDE
  7. BABY ASPIRIN [Concomitant]
     Active Substance: ASPIRIN
  8. GEMFIBROZIL. [Concomitant]
     Active Substance: GEMFIBROZIL
  9. VALSARTAN?HCTZ 320?12.5 MG [Suspect]
     Active Substance: HYDROCHLOROTHIAZIDE\VALSARTAN
     Indication: HYPERTENSION
     Dosage: ?          QUANTITY:1 TABLET(S);?
     Route: 048
     Dates: start: 20130401, end: 20180719
  10. ONE?A?DAY MULTIVITAMIN [Concomitant]

REACTIONS (1)
  - Breast cancer [None]

NARRATIVE: CASE EVENT DATE: 20170727
